FAERS Safety Report 10024930 (Version 1)
Quarter: 2014Q1

REPORT INFORMATION
  Report Type: Spontaneous
  Country: US (occurrence: None)
  Receive Date: 20140318
  Receipt Date: 20140318
  Transmission Date: 20141002
  Serious: Yes (Other)
  Sender: FDA-Public Use
  Company Number: 2014P1002008

PATIENT
  Age: 80 Year
  Sex: Female
  Weight: 56.7 kg

DRUGS (8)
  1. PEPCID TABLETS 20 MG (NO PREF. NAME) [Suspect]
     Indication: GASTROOESOPHAGEAL REFLUX DISEASE
     Route: 048
     Dates: start: 201401, end: 201401
  2. TIKOSYN [Suspect]
     Indication: ATRIAL FIBRILLATION
     Route: 048
     Dates: start: 20121226
  3. CARAFATE [Suspect]
     Indication: GASTROOESOPHAGEAL REFLUX DISEASE
     Dates: start: 201402, end: 201402
  4. XARELTO [Concomitant]
  5. ATIVAN [Concomitant]
  6. TOPROL [Concomitant]
  7. VITAMIN D3 [Concomitant]
  8. INJECTION FOR OSTEOARTHRITIS (UNSPECIFIED) [Concomitant]

REACTIONS (3)
  - Palpitations [None]
  - Heart rate irregular [None]
  - Drug interaction [None]
